FAERS Safety Report 11792709 (Version 1)
Quarter: 2015Q4

REPORT INFORMATION
  Report Type: Spontaneous
  Country: RU (occurrence: None)
  Receive Date: 20151130
  Receipt Date: 20151130
  Transmission Date: 20160305
  Serious: Yes (Hospitalization, Other)
  Sender: FDA-Public Use
  Company Number: 2015R1-106671

PATIENT
  Age: 48 Year
  Sex: Female

DRUGS (1)
  1. METHIMAZOLE (THIAMAZOLE) UNKOWN [Suspect]
     Active Substance: METHIMAZOLE
     Indication: HYPERTHYROIDISM

REACTIONS (5)
  - Hepatocellular injury [None]
  - Tachycardia [None]
  - Drug-induced liver injury [None]
  - Hepatotoxicity [None]
  - Hepatic failure [None]
